FAERS Safety Report 6428548-9 (Version None)
Quarter: 2009Q4

REPORT INFORMATION
  Report Type: 
  Country: None (occurrence: None)
  Receive Date: 20091105
  Receipt Date: 20091022
  Transmission Date: 20100525
  Serious: Yes (Hospitalization)
  Sender: FDA-Public Use
  Company Number: DE-GENENTECH-293045

PATIENT
  Sex: Male

DRUGS (2)
  1. RITUXIMAB [Suspect]
     Indication: CHRONIC LYMPHOCYTIC LEUKAEMIA
     Dosage: 700 MG, UNK
     Route: 042
     Dates: end: 20090902
  2. BENDAMUSTINE [Suspect]
     Indication: CHRONIC LYMPHOCYTIC LEUKAEMIA
     Dosage: UNK
     Route: 042
     Dates: end: 20090902

REACTIONS (4)
  - INCONTINENCE [None]
  - INFECTION [None]
  - MALIGNANT NEOPLASM PROGRESSION [None]
  - PYREXIA [None]
